FAERS Safety Report 10086483 (Version 2)
Quarter: 2014Q2

REPORT INFORMATION
  Report Type: Spontaneous
  Country: CA (occurrence: CA)
  Receive Date: 20140418
  Receipt Date: 20140424
  Transmission Date: 20141212
  Serious: Yes (Other)
  Sender: FDA-Public Use
  Company Number: CA-PFIZER INC-2014106684

PATIENT
  Age: 72 Year
  Sex: Female
  Weight: 62 kg

DRUGS (8)
  1. AMIODARONE HCL [Suspect]
     Dosage: 200 MG, 1X/DAY
  2. MYCOPHENOLATE MOFETIL [Suspect]
     Dosage: 180 MG, 2X/DAY
     Route: 048
  3. EPOETIN ALFA [Suspect]
     Dosage: 5000 IU, 3 EVERY 1 WEEK
     Route: 042
  4. EPOETIN ALFA [Suspect]
     Dosage: 4000 IU, 3 EVERY 1 WEEK
     Route: 042
  5. TACROLIMUS [Suspect]
     Dosage: 1 G, 1X/DAY
     Route: 048
  6. ACETYLSALICYLIC ACID ENTERIC COATED [Concomitant]
     Dosage: UNK
  7. SACCHARATED IRON OXIDE [Concomitant]
     Dosage: UNK
     Route: 042
  8. WARFARIN [Concomitant]
     Dosage: UNK

REACTIONS (3)
  - Anti-erythropoietin antibody negative [Not Recovered/Not Resolved]
  - Aplasia pure red cell [Not Recovered/Not Resolved]
  - Haemoglobin decreased [Not Recovered/Not Resolved]
